FAERS Safety Report 4881860-7 (Version None)
Quarter: 2006Q1

REPORT INFORMATION
  Report Type: 
  Country: None (occurrence: None)
  Receive Date: 20060112
  Receipt Date: 20060112
  Transmission Date: 20060701
  Serious: Yes (Hospitalization)
  Sender: FDA-Public Use
  Company Number: None

PATIENT
  Age: 62 Year
  Sex: Male
  Weight: 124 kg

DRUGS (1)
  1. TEVETEN [Suspect]
     Indication: HYPERTENSION

REACTIONS (2)
  - BRONCHITIS [None]
  - THROMBOCYTOPENIA [None]
